FAERS Safety Report 6216074-1 (Version None)
Quarter: 2009Q2

REPORT INFORMATION
  Report Type: 
  Country: None (occurrence: None)
  Receive Date: 20090605
  Receipt Date: 20090526
  Transmission Date: 20091009
  Serious: Yes (Death, Life-Threatening, Hospitalization)
  Sender: FDA-Public Use
  Company Number: SE-JNJFOC-20090600118

PATIENT
  Age: 59 Year
  Sex: Female

DRUGS (9)
  1. REMICADE [Suspect]
     Indication: PSORIASIS
     Route: 042
  2. METOJECT [Concomitant]
  3. PLENDIL [Concomitant]
  4. NORMORIX [Concomitant]
  5. DAONIL [Concomitant]
  6. METFORMIN HYDROCHLORIDE [Concomitant]
  7. LEVOTHYROXINE SODIUM [Concomitant]
  8. TROMBYL [Concomitant]
  9. LANSOPRAZOLE [Concomitant]

REACTIONS (11)
  - AXILLARY PAIN [None]
  - BLOOD POTASSIUM DECREASED [None]
  - CHEST X-RAY ABNORMAL [None]
  - DEATH [None]
  - DECREASED APPETITE [None]
  - DYSPNOEA [None]
  - GENERAL PHYSICAL CONDITION ABNORMAL [None]
  - NEOPLASM [None]
  - PAIN IN EXTREMITY [None]
  - TENDONITIS [None]
  - WEIGHT DECREASED [None]
